FAERS Safety Report 19766005 (Version 1)
Quarter: 2021Q3

REPORT INFORMATION
  Report Type: Spontaneous
  Country: GB (occurrence: GB)
  Receive Date: 20210831
  Receipt Date: 20210831
  Transmission Date: 20211014
  Serious: Yes (Other)
  Sender: FDA-Public Use
  Company Number: GB-MICRO LABS LIMITED-ML2021-02167

PATIENT
  Age: 47 Year
  Sex: Female
  Weight: 68.03 kg

DRUGS (4)
  1. CONTRACEPTIVE IMPLANT [Concomitant]
     Active Substance: UNSPECIFIED INGREDIENT
     Route: 015
  2. CLINDAMYCIN. [Suspect]
     Active Substance: CLINDAMYCIN
     Indication: PELVIC INFECTION
     Route: 048
     Dates: start: 20210221, end: 20210224
  3. AMITRIPTYLINE [Concomitant]
     Active Substance: AMITRIPTYLINE
  4. STEMETIL [Concomitant]
     Active Substance: PROCHLORPERAZINE

REACTIONS (5)
  - Urticaria [Recovered/Resolved]
  - Dyspnoea [Unknown]
  - Pruritus [Recovered/Resolved]
  - Dysphagia [Recovered/Resolved]
  - Swollen tongue [Recovered/Resolved]

NARRATIVE: CASE EVENT DATE: 20210223
